FAERS Safety Report 17790507 (Version 2)
Quarter: 2020Q3

REPORT INFORMATION
  Report Type: Spontaneous
  Country: US (occurrence: US)
  Receive Date: 20200514
  Receipt Date: 20200812
  Transmission Date: 20201102
  Serious: No
  Sender: FDA-Public Use
  Company Number: US-RIGEL PHARMACEUTICALS, INC.-2020FOS000163

PATIENT
  Sex: Female

DRUGS (3)
  1. TAVALISSE [Suspect]
     Active Substance: FOSTAMATINIB
     Indication: THROMBOCYTOPENIA
     Dosage: 100 MG, BID
     Route: 048
     Dates: start: 202003, end: 20200521
  2. TAVALISSE [Suspect]
     Active Substance: FOSTAMATINIB
     Dosage: 100 MG, QD
     Route: 048
     Dates: start: 20200522
  3. TAVALISSE [Suspect]
     Active Substance: FOSTAMATINIB
     Dosage: 100 MG, BID
     Route: 048
     Dates: start: 202003, end: 202003

REACTIONS (5)
  - Diarrhoea [Recovered/Resolved]
  - Blood pressure increased [Recovering/Resolving]
  - Off label use [Unknown]
  - Fatigue [Recovering/Resolving]
  - Platelet count decreased [Recovering/Resolving]

NARRATIVE: CASE EVENT DATE: 2020
